FAERS Safety Report 6461186-0 (Version None)
Quarter: 2009Q4

REPORT INFORMATION
  Report Type: 
  Country: None (occurrence: None)
  Receive Date: 20091130
  Receipt Date: 20091124
  Transmission Date: 20100525
  Serious: No
  Sender: FDA-Public Use
  Company Number: US-B.I. PHARMACEUTICALS,INC./RIDGEFIELD-2009-BP-13707BP

PATIENT
  Sex: Female

DRUGS (8)
  1. SPIRIVA [Suspect]
     Indication: CHRONIC OBSTRUCTIVE PULMONARY DISEASE
     Dosage: 18 MCG
     Route: 055
     Dates: start: 20090828
  2. SPIRIVA [Suspect]
     Indication: ASTHMA
  3. MAXZIDE [Concomitant]
     Indication: HYPERTENSION
  4. ESTRATEST-DS [Concomitant]
     Indication: OESTROGEN THERAPY
  5. ADDERALL 10 [Concomitant]
     Indication: PSYCHOTIC DISORDER
  6. TOFRANIL [Concomitant]
     Indication: PSYCHOTIC DISORDER
  7. LIPITOR [Concomitant]
     Indication: BLOOD CHOLESTEROL INCREASED
  8. AMBIEN [Concomitant]
     Indication: SLEEP DISORDER

REACTIONS (2)
  - AMNESIA [None]
  - GASTROOESOPHAGEAL REFLUX DISEASE [None]
